FAERS Safety Report 12601842 (Version 1)
Quarter: 2016Q3

REPORT INFORMATION
  Report Type: Spontaneous
  Country: US (occurrence: None)
  Receive Date: 20160727
  Receipt Date: 20160727
  Transmission Date: 20161109
  Serious: Yes (Hospitalization)
  Sender: FDA-Public Use
  Company Number: None

PATIENT
  Age: 37 Year
  Sex: Female

DRUGS (15)
  1. BOSENTAN. [Concomitant]
     Active Substance: BOSENTAN
  2. DIPHENHYDRAMINE. [Concomitant]
     Active Substance: DIPHENHYDRAMINE
  3. NORMAL SALINE [Concomitant]
     Active Substance: SODIUM CHLORIDE
  4. DILTIAZEM. [Concomitant]
     Active Substance: DILTIAZEM
  5. POTASSIUM CHLORIDE. [Concomitant]
     Active Substance: POTASSIUM CHLORIDE
  6. SPIRONOLACTONE. [Concomitant]
     Active Substance: SPIRONOLACTONE
  7. DIAZEPAM. [Concomitant]
     Active Substance: DIAZEPAM
  8. LANSOPRAZOLE. [Concomitant]
     Active Substance: LANSOPRAZOLE
  9. TADALAFIL [Concomitant]
     Active Substance: TADALAFIL
  10. TREPROSTINIL [Concomitant]
     Active Substance: TREPROSTINIL
  11. RIVAROXABAN [Suspect]
     Active Substance: RIVAROXABAN
     Indication: ANTICOAGULANT THERAPY
     Dosage: PRIOR TO ADMISSION
     Route: 048
  12. MEDROXYPROGESTERONE [Concomitant]
     Active Substance: MEDROXYPROGESTERONE
  13. PREDNISONE. [Concomitant]
     Active Substance: PREDNISONE
  14. TORSEMIDE. [Concomitant]
     Active Substance: TORSEMIDE
  15. ALBUTEROL. [Concomitant]
     Active Substance: ALBUTEROL

REACTIONS (2)
  - Abdominal pain upper [None]
  - Haematemesis [None]

NARRATIVE: CASE EVENT DATE: 20160624
